FAERS Safety Report 13738433 (Version 1)
Quarter: 2017Q3

REPORT INFORMATION
  Report Type: Spontaneous
  Country: US (occurrence: US)
  Receive Date: 20170710
  Receipt Date: 20170710
  Transmission Date: 20171127
  Serious: Yes (Other)
  Sender: FDA-Public Use
  Company Number: US-ELI_LILLY_AND_COMPANY-US201706013186

PATIENT
  Age: 59 Year
  Sex: Female

DRUGS (6)
  1. LANTUS [Concomitant]
     Active Substance: INSULIN GLARGINE
     Indication: TYPE 2 DIABETES MELLITUS
     Dosage: 44 U, EACH EVENING
     Route: 065
  2. HUMALOG [Suspect]
     Active Substance: INSULIN LISPRO
     Indication: TYPE 2 DIABETES MELLITUS
     Dosage: UNK, UNKNOWN
     Route: 058
     Dates: start: 2011
  3. HUMALOG [Suspect]
     Active Substance: INSULIN LISPRO
     Dosage: UNK, UNKNOWN
     Route: 058
     Dates: start: 2011
  4. HUMALOG [Suspect]
     Active Substance: INSULIN LISPRO
     Dosage: UNK, UNKNOWN
     Route: 058
     Dates: start: 2011
  5. HUMALOG [Suspect]
     Active Substance: INSULIN LISPRO
     Dosage: UNK, UNKNOWN
     Route: 058
     Dates: start: 2011
  6. METFORMIN [Concomitant]
     Active Substance: METFORMIN HYDROCHLORIDE
     Indication: TYPE 2 DIABETES MELLITUS
     Dosage: 2 DF, DAILY
     Route: 065

REACTIONS (9)
  - Fall [Unknown]
  - Mobility decreased [Unknown]
  - Abdominal discomfort [Unknown]
  - Visual acuity reduced [Unknown]
  - Diarrhoea [Unknown]
  - Dry eye [Unknown]
  - Dry mouth [Unknown]
  - Drug dose omission [Unknown]
  - Lower limb fracture [Unknown]

NARRATIVE: CASE EVENT DATE: 201705
